FAERS Safety Report 8464283-3 (Version None)
Quarter: 2012Q2

REPORT INFORMATION
  Report Type: 
  Country: None (occurrence: None)
  Receive Date: 20120625
  Receipt Date: 20120619
  Transmission Date: 20120825
  Serious: Yes (Other)
  Sender: FDA-Public Use
  Company Number: US-AMGEN-USASP2011058465

PATIENT
  Age: 54 Year
  Sex: Female

DRUGS (10)
  1. SIMVASTATIN [Concomitant]
     Dosage: 40 MG, UNK
     Route: 048
     Dates: start: 20110208
  2. OXCARBAZEPINE [Concomitant]
     Dosage: 600 MG, BID
     Route: 048
     Dates: start: 20110219
  3. ENBREL [Suspect]
     Indication: SYSTEMIC LUPUS ERYTHEMATOSUS
     Dosage: 50 MG, UNK
     Dates: start: 20101021, end: 20110901
  4. CLODERM [Concomitant]
     Dosage: UNK UNK, BID
     Route: 061
     Dates: start: 20110920
  5. ENBREL [Suspect]
     Indication: RHEUMATOID ARTHRITIS
     Dosage: UNK UNK, Q2WK
     Route: 058
     Dates: start: 20110601, end: 20110901
  6. PLAVIX [Concomitant]
     Dosage: 75 MG, UNK
     Route: 048
     Dates: start: 20110208
  7. ENBREL [Suspect]
     Indication: SJOGREN'S SYNDROME
  8. TOPIRAMATE [Concomitant]
     Dosage: 100 MG, UNK
     Route: 048
     Dates: start: 20110214
  9. TOPROL-XL [Concomitant]
     Dosage: 25 MG, UNK
     Route: 048
     Dates: start: 20110208
  10. ASPIRIN [Concomitant]
     Dosage: 81 MG, UNK
     Route: 048

REACTIONS (3)
  - GAIT DISTURBANCE [None]
  - SYSTEMIC LUPUS ERYTHEMATOSUS RASH [None]
  - RHEUMATOID ARTHRITIS [None]
